FAERS Safety Report 9928713 (Version 2)
Quarter: 2014Q1

REPORT INFORMATION
  Report Type: Spontaneous
  Country: US (occurrence: US)
  Receive Date: 20140227
  Receipt Date: 20140319
  Transmission Date: 20141002
  Serious: Yes (Hospitalization, Other)
  Sender: FDA-Public Use
  Company Number: US-JNJFOC-20140214036

PATIENT
  Age: 52 Year
  Sex: Male
  Weight: 150.6 kg

DRUGS (6)
  1. XARELTO [Suspect]
     Indication: DEEP VEIN THROMBOSIS
     Route: 048
     Dates: start: 20130516
  2. XARELTO [Suspect]
     Indication: DEEP VEIN THROMBOSIS
     Route: 048
  3. XARELTO [Suspect]
     Indication: THROMBOPHLEBITIS SUPERFICIAL
     Route: 048
  4. XARELTO [Suspect]
     Indication: THROMBOPHLEBITIS SUPERFICIAL
     Route: 048
     Dates: start: 20130516
  5. WARFARIN [Suspect]
     Indication: DEEP VEIN THROMBOSIS
     Route: 065
     Dates: start: 201007
  6. WARFARIN [Suspect]
     Indication: THROMBOPHLEBITIS SUPERFICIAL
     Route: 065
     Dates: start: 201007

REACTIONS (2)
  - Deep vein thrombosis [Unknown]
  - Duodenitis haemorrhagic [Recovering/Resolving]
